FAERS Safety Report 22599802 (Version 1)
Quarter: 2023Q2

REPORT INFORMATION
  Report Type: Spontaneous
  Country: GB (occurrence: GB)
  Receive Date: 20230614
  Receipt Date: 20230614
  Transmission Date: 20230722
  Serious: Yes (Disabling)
  Sender: FDA-Public Use
  Company Number: GB-MHRA-MED-202306021648448040-QNHKC

PATIENT
  Sex: Male
  Weight: 78 kg

DRUGS (5)
  1. LANSOPRAZOLE [Suspect]
     Active Substance: LANSOPRAZOLE
     Indication: Product used for unknown indication
     Route: 065
  2. RIVAROXABAN [Suspect]
     Active Substance: RIVAROXABAN
     Indication: Deep vein thrombosis
     Dosage: 30 MILLIGRAM DAILY; 15MG BD FOR 21 DAYS FROM 17/5/23 THEN REVIEW TO STEP DOWN; ;
     Dates: start: 20230517, end: 20230529
  3. FLUCLOXACILLIN [Suspect]
     Active Substance: FLUCLOXACILLIN
     Indication: Folliculitis
     Dosage: 2000 MILLIGRAM DAILY;
     Dates: start: 20230525
  4. DEXAMETHASONE [Concomitant]
     Active Substance: DEXAMETHASONE
     Indication: Product used for unknown indication
  5. LANSOPRAZOLE [Concomitant]
     Active Substance: LANSOPRAZOLE
     Indication: Product used for unknown indication
     Dates: start: 20230414

REACTIONS (3)
  - Toxic epidermal necrolysis [Not Recovered/Not Resolved]
  - Stevens-Johnson syndrome [Not Recovered/Not Resolved]
  - Symmetrical drug-related intertriginous and flexural exanthema [Not Recovered/Not Resolved]

NARRATIVE: CASE EVENT DATE: 20230530
